FAERS Safety Report 4596360-1 (Version None)
Quarter: 2005Q1

REPORT INFORMATION
  Report Type: 
  Country: None (occurrence: None)
  Receive Date: 20050225
  Receipt Date: 20050210
  Transmission Date: 20050727
  Serious: Yes (Hospitalization)
  Sender: FDA-Public Use
  Company Number: 2005AP01160

PATIENT
  Sex: Female

DRUGS (1)
  1. NOLVADEX [Suspect]
     Dosage: 20 MG DAILY PO
     Route: 048

REACTIONS (2)
  - PEMPHIGOID [None]
  - VISUAL ACUITY REDUCED [None]
